FAERS Safety Report 10528447 (Version 5)
Quarter: 2015Q1

REPORT INFORMATION
  Report Type: Spontaneous
  Country: HU (occurrence: HU)
  Receive Date: 20141020
  Receipt Date: 20150324
  Transmission Date: 20150720
  Serious: Yes (Other)
  Sender: FDA-Public Use
  Company Number: HU-PFIZER INC-2014282710

PATIENT
  Age: 86 Year
  Sex: Male

DRUGS (4)
  1. CARDURA XL [Suspect]
     Active Substance: DOXAZOSIN MESYLATE
     Indication: HYPERTENSION
     Dosage: 4 MG, 1X/DAY
     Route: 048
     Dates: start: 20141006
  2. MILURIT [Suspect]
     Active Substance: ALLOPURINOL
     Dosage: 300 (UNSPECIFIED UNITS), UNK
  3. VIDONORM [Concomitant]
     Indication: HYPERTENSION
     Dosage: UNK
  4. VIDITON KOMB [Concomitant]
     Indication: HYPERTENSION
     Dosage: UNK

REACTIONS (6)
  - Blood pressure decreased [Recovered/Resolved]
  - Pain in extremity [Unknown]
  - Pruritus [Unknown]
  - Cataract [Recovered/Resolved]
  - Peripheral swelling [Unknown]
  - Circumstance or information capable of leading to medication error [Unknown]

NARRATIVE: CASE EVENT DATE: 20141010
